FAERS Safety Report 10097257 (Version 1)
Quarter: 2014Q2

REPORT INFORMATION
  Report Type: Spontaneous
  Country: US (occurrence: US)
  Receive Date: 20140422
  Receipt Date: 20140422
  Transmission Date: 20141212
  Serious: No
  Sender: FDA-Public Use
  Company Number: US-009507513-1404USA000086

PATIENT
  Age: 58 Year
  Sex: Male

DRUGS (1)
  1. ASMANEX TWISTHALER [Suspect]
     Indication: ASTHMA
     Dosage: 110 MICROGRAM, QD
     Route: 055
     Dates: start: 20140314

REACTIONS (3)
  - Headache [Recovered/Resolved]
  - Drug dose omission [Unknown]
  - Product quality issue [Unknown]
